FAERS Safety Report 9559870 (Version 1)
Quarter: 2013Q3

REPORT INFORMATION
  Report Type: Spontaneous
  Country: US (occurrence: None)
  Receive Date: 20130906
  Receipt Date: 20130906
  Transmission Date: 20140515
  Serious: Yes (Hospitalization, Other)
  Sender: FDA-Public Use
  Company Number: 163-POMAL-13073739

PATIENT
  Age: 54 Year
  Sex: Male
  Weight: 108.86 kg

DRUGS (12)
  1. POMALYST [Suspect]
     Indication: PLASMA CELL MYELOMA
     Dosage: 4 MG, 1 IN 1 D, PO
     Route: 048
     Dates: start: 20130627
  2. CENTRUM SILVER (CENTRUM SILVER) [Concomitant]
  3. RAPAMUNE (SIROLIMUS) [Concomitant]
  4. DEXAMETHASONE (DEXAMETHASONE) [Concomitant]
  5. PREDNISONE (PREDNISONE) [Concomitant]
  6. ZOMETA (ZOLEDRONIC ACID) [Concomitant]
  7. METOPROLOL TARTRATE (METOPROLOL TARTRATE) [Concomitant]
  8. ONDANSETRON HCL (ONDANSETRON HYDROCHLORIDE) [Concomitant]
  9. AMITRIPTYLINE HCL (AMITRIPTYLINE HYDROCHLORIDE) [Concomitant]
  10. HYDROCODONE/ACETAMINOPHEN (REMEDEINE) [Concomitant]
  11. PROAIR HFA (SALBUTAMOL SULFATE) [Concomitant]
  12. WARFARIN (WARFARIN) [Concomitant]

REACTIONS (2)
  - Pneumonia [None]
  - Platelet count decreased [None]
